FAERS Safety Report 8341894-7 (Version None)
Quarter: 2012Q2

REPORT INFORMATION
  Report Type: 
  Country: None (occurrence: None)
  Receive Date: 20120507
  Receipt Date: 20120502
  Transmission Date: 20120825
  Serious: Yes (Other)
  Sender: FDA-Public Use
  Company Number: US-PFIZER INC-2012108246

PATIENT
  Sex: Female
  Weight: 86.2 kg

DRUGS (2)
  1. LYRICA [Suspect]
     Dosage: UNK
     Route: 048
  2. LYRICA [Suspect]
     Indication: FIBROMYALGIA
     Dosage: 75 MG, 2X/DAY
     Route: 048

REACTIONS (2)
  - JOINT SWELLING [None]
  - MYALGIA [None]
